FAERS Safety Report 9008340 (Version 1)
Quarter: 2013Q1

REPORT INFORMATION
  Report Type: Spontaneous
  Country: US (occurrence: US)
  Receive Date: 20130111
  Receipt Date: 20130111
  Transmission Date: 20140127
  Serious: No
  Sender: FDA-Public Use
  Company Number: US-009507513-1208USA009944

PATIENT
  Age: 24 Year
  Sex: Female
  Weight: 53.97 kg

DRUGS (1)
  1. IMPLANON [Suspect]
     Indication: CONTRACEPTION
     Dosage: UNK/EVERY 3 YEARS
     Route: 059
     Dates: start: 20091211

REACTIONS (3)
  - Menstruation irregular [Unknown]
  - Muscle spasms [Unknown]
  - Hypoaesthesia [Unknown]
